FAERS Safety Report 6064161-3 (Version None)
Quarter: 2009Q1

REPORT INFORMATION
  Report Type: 
  Country: None (occurrence: None)
  Receive Date: 20090204
  Receipt Date: 20090129
  Transmission Date: 20090719
  Serious: Yes (Death)
  Sender: FDA-Public Use
  Company Number: JP-NOVOPROD-282324

PATIENT
  Age: 85 Year
  Sex: Female
  Weight: 41 kg

DRUGS (8)
  1. NOVOLIN R [Suspect]
     Indication: TYPE 2 DIABETES MELLITUS
     Dosage: 410 IU, SINGLE
     Route: 058
     Dates: start: 20081207, end: 20081207
  2. NOVOLIN R [Suspect]
     Dosage: 16 IU, QD
     Route: 058
  3. GASTER D [Concomitant]
     Dosage: 20 MG, QD
     Route: 048
  4. BASEN [Concomitant]
     Dosage: .9 MG, QD
     Route: 048
  5. ZYLORIC                            /00003301/ [Concomitant]
     Dosage: 200 MG, QD
     Route: 048
  6. ASPIRIN [Concomitant]
     Dosage: 100 MG, QD
     Route: 048
  7. LASIX [Concomitant]
     Dosage: 20 MG, QD
     Route: 048
  8. EUGLUCON [Concomitant]
     Dosage: 1.25 UNK, QD
     Route: 048

REACTIONS (2)
  - HYPOGLYCAEMIA [None]
  - INTENTIONAL OVERDOSE [None]
